FAERS Safety Report 18250252 (Version 2)
Quarter: 2020Q3

REPORT INFORMATION
  Report Type: Spontaneous
  Country: US (occurrence: US)
  Receive Date: 20200909
  Receipt Date: 20200930
  Transmission Date: 20201103
  Serious: Yes (Hospitalization)
  Sender: FDA-Public Use
  Company Number: US-JNJFOC-A-NJ2020-205526

PATIENT
  Age: 29 Year
  Sex: Female
  Weight: 90.8 kg

DRUGS (8)
  1. VELETRI [Suspect]
     Active Substance: EPOPROSTENOL
     Indication: PULMONARY ARTERIAL HYPERTENSION
     Route: 042
  2. VELETRI [Suspect]
     Active Substance: EPOPROSTENOL
     Route: 042
  3. ELIQUIS [Concomitant]
     Active Substance: APIXABAN
  4. TADALAFIL. [Suspect]
     Active Substance: TADALAFIL
     Indication: PRODUCT USED FOR UNKNOWN INDICATION
     Route: 065
  5. VELETRI [Suspect]
     Active Substance: EPOPROSTENOL
     Route: 042
  6. VELETRI [Suspect]
     Active Substance: EPOPROSTENOL
     Route: 042
  7. OPSUMIT [Suspect]
     Active Substance: MACITENTAN
     Indication: PULMONARY ARTERIAL HYPERTENSION
     Dosage: 10 MG, QD
     Route: 048
  8. VELETRI [Suspect]
     Active Substance: EPOPROSTENOL
     Route: 042

REACTIONS (15)
  - Palpitations [Unknown]
  - Flushing [Unknown]
  - Complication associated with device [Unknown]
  - Device alarm issue [Unknown]
  - Headache [Unknown]
  - Hypersensitivity [Unknown]
  - Pain [Unknown]
  - Catheter site pruritus [Unknown]
  - Vomiting [Unknown]
  - Joint stiffness [Unknown]
  - Eye irritation [Unknown]
  - Back pain [Unknown]
  - Catheter site discharge [Unknown]
  - Presyncope [Unknown]
  - Hot flush [Unknown]

NARRATIVE: CASE EVENT DATE: 2020
